FAERS Safety Report 6046186-7 (Version None)
Quarter: 2009Q1

REPORT INFORMATION
  Report Type: 
  Country: None (occurrence: None)
  Receive Date: 20090121
  Receipt Date: 20090121
  Transmission Date: 20090719
  Serious: No
  Sender: FDA-Public Use
  Company Number: None

PATIENT
  Age: 53 Year
  Sex: Female
  Weight: 68.0396 kg

DRUGS (2)
  1. LEVAQUIN [Suspect]
     Indication: BRONCHITIS
     Dosage: ONE TABLET DAILY
     Dates: start: 20080501, end: 20080510
  2. LEVAQUIN [Suspect]
     Indication: PNEUMONIA
     Dosage: ONE TABLET DAILY
     Dates: start: 20080501, end: 20080510

REACTIONS (2)
  - AGEUSIA [None]
  - ANOSMIA [None]
